FAERS Safety Report 22631135 (Version 1)
Quarter: 2023Q2

REPORT INFORMATION
  Report Type: Spontaneous
  Country: CN (occurrence: CN)
  Receive Date: 20230622
  Receipt Date: 20230622
  Transmission Date: 20230721
  Serious: Yes (Death, Hospitalization)
  Sender: FDA-Public Use
  Company Number: CN-STRIDES ARCOLAB LIMITED-2023SP009696

PATIENT
  Age: 68 Year
  Sex: Male

DRUGS (35)
  1. VANCOMYCIN [Suspect]
     Active Substance: VANCOMYCIN
     Indication: Haematological infection
     Dosage: UNK
     Route: 065
  2. VANCOMYCIN [Suspect]
     Active Substance: VANCOMYCIN
     Indication: Abdominal infection
  3. VANCOMYCIN [Suspect]
     Active Substance: VANCOMYCIN
     Indication: Pneumonia bacterial
  4. VANCOMYCIN [Suspect]
     Active Substance: VANCOMYCIN
     Indication: Klebsiella infection
  5. MOXIFLOXACIN [Suspect]
     Active Substance: MOXIFLOXACIN
     Indication: Haematological infection
     Dosage: UNK
     Route: 065
  6. MOXIFLOXACIN [Suspect]
     Active Substance: MOXIFLOXACIN
     Indication: Abdominal infection
  7. MOXIFLOXACIN [Suspect]
     Active Substance: MOXIFLOXACIN
     Indication: Pneumonia bacterial
  8. MOXIFLOXACIN [Suspect]
     Active Substance: MOXIFLOXACIN
     Indication: Klebsiella infection
  9. CEFOPERAZONE SODIUM\SULBACTAM [Suspect]
     Active Substance: CEFOPERAZONE SODIUM\SULBACTAM
     Indication: Haematological infection
     Dosage: UNK
     Route: 065
  10. CEFOPERAZONE SODIUM\SULBACTAM [Suspect]
     Active Substance: CEFOPERAZONE SODIUM\SULBACTAM
     Indication: Abdominal infection
  11. CEFOPERAZONE SODIUM\SULBACTAM [Suspect]
     Active Substance: CEFOPERAZONE SODIUM\SULBACTAM
     Indication: Pneumonia bacterial
  12. CEFOPERAZONE SODIUM\SULBACTAM [Suspect]
     Active Substance: CEFOPERAZONE SODIUM\SULBACTAM
     Indication: Klebsiella infection
  13. LEVOFLOXACIN [Suspect]
     Active Substance: LEVOFLOXACIN
     Indication: Haematological infection
     Dosage: UNK
     Route: 065
  14. LEVOFLOXACIN [Suspect]
     Active Substance: LEVOFLOXACIN
     Indication: Abdominal infection
  15. LEVOFLOXACIN [Suspect]
     Active Substance: LEVOFLOXACIN
     Indication: Pneumonia bacterial
  16. LEVOFLOXACIN [Suspect]
     Active Substance: LEVOFLOXACIN
     Indication: Klebsiella infection
  17. MEROPENEM [Suspect]
     Active Substance: MEROPENEM
     Indication: Haematological infection
     Dosage: UNK
     Route: 065
  18. MEROPENEM [Suspect]
     Active Substance: MEROPENEM
     Indication: Abdominal infection
  19. MEROPENEM [Suspect]
     Active Substance: MEROPENEM
     Indication: Pneumonia bacterial
  20. MEROPENEM [Suspect]
     Active Substance: MEROPENEM
     Indication: Klebsiella infection
  21. MEROPENEM [Suspect]
     Active Substance: MEROPENEM
     Indication: Septic shock
  22. TIGECYCLINE [Suspect]
     Active Substance: TIGECYCLINE
     Indication: Haematological infection
     Dosage: UNK
     Route: 065
  23. TIGECYCLINE [Suspect]
     Active Substance: TIGECYCLINE
     Indication: Abdominal infection
  24. TIGECYCLINE [Suspect]
     Active Substance: TIGECYCLINE
     Indication: Pneumonia bacterial
  25. TIGECYCLINE [Suspect]
     Active Substance: TIGECYCLINE
     Indication: Klebsiella infection
  26. AVIBACTAM SODIUM\CEFTAZIDIME [Suspect]
     Active Substance: AVIBACTAM SODIUM\CEFTAZIDIME
     Indication: Haematological infection
     Dosage: 2.5 GRAM, EVERY 8 HRS
     Route: 042
  27. AVIBACTAM SODIUM\CEFTAZIDIME [Suspect]
     Active Substance: AVIBACTAM SODIUM\CEFTAZIDIME
     Indication: Abdominal infection
     Dosage: 2.5 GRAM, EVERY 12 HRS
     Route: 042
  28. AVIBACTAM SODIUM\CEFTAZIDIME [Suspect]
     Active Substance: AVIBACTAM SODIUM\CEFTAZIDIME
     Indication: Pneumonia bacterial
  29. AVIBACTAM SODIUM\CEFTAZIDIME [Suspect]
     Active Substance: AVIBACTAM SODIUM\CEFTAZIDIME
     Indication: Klebsiella infection
  30. AVIBACTAM SODIUM\CEFTAZIDIME [Suspect]
     Active Substance: AVIBACTAM SODIUM\CEFTAZIDIME
     Indication: Septic shock
  31. PIPERACILLIN SODIUM\TAZOBACTAM SODIUM [Suspect]
     Active Substance: PIPERACILLIN SODIUM\TAZOBACTAM SODIUM
     Indication: Haematological infection
     Dosage: UNK
     Route: 065
  32. PIPERACILLIN SODIUM\TAZOBACTAM SODIUM [Suspect]
     Active Substance: PIPERACILLIN SODIUM\TAZOBACTAM SODIUM
     Indication: Abdominal infection
  33. PIPERACILLIN SODIUM\TAZOBACTAM SODIUM [Suspect]
     Active Substance: PIPERACILLIN SODIUM\TAZOBACTAM SODIUM
     Indication: Pneumonia bacterial
  34. PIPERACILLIN SODIUM\TAZOBACTAM SODIUM [Suspect]
     Active Substance: PIPERACILLIN SODIUM\TAZOBACTAM SODIUM
     Indication: Klebsiella infection
  35. PIPERACILLIN SODIUM\TAZOBACTAM SODIUM [Suspect]
     Active Substance: PIPERACILLIN SODIUM\TAZOBACTAM SODIUM
     Indication: Septic shock

REACTIONS (5)
  - Death [Fatal]
  - Multiple organ dysfunction syndrome [Unknown]
  - Disease progression [Unknown]
  - Treatment failure [Unknown]
  - Off label use [Unknown]
